FAERS Safety Report 26105206 (Version 2)
Quarter: 2025Q4

REPORT INFORMATION
  Report Type: Spontaneous
  Country: AU (occurrence: AU)
  Receive Date: 20251201
  Receipt Date: 20251224
  Transmission Date: 20260118
  Serious: Yes (Hospitalization)
  Sender: CSL BEHRING
  Company Number: AU-CSL-12577

PATIENT
  Age: 7 Year
  Sex: Female
  Weight: 19.5 kg

DRUGS (10)
  1. HUMAN IMMUNOGLOBULIN G [Suspect]
     Active Substance: HUMAN IMMUNOGLOBULIN G
     Indication: Immune tolerance induction
     Dosage: 20 G, QMT
     Route: 042
     Dates: start: 20251112, end: 20251112
  2. HUMAN IMMUNOGLOBULIN G [Suspect]
     Active Substance: HUMAN IMMUNOGLOBULIN G
     Indication: Solid organ transplant
     Dosage: 20 G, QMT
     Route: 065
  3. ACYCLOVIR [Concomitant]
     Active Substance: ACYCLOVIR
     Indication: Transplant
     Dosage: 200 MG
     Route: 048
  4. FUROSEMIDE [Concomitant]
     Active Substance: FUROSEMIDE
     Indication: Cardiac failure
     Dosage: 200 MG
     Route: 048
  5. SPIRONOLACTONE [Concomitant]
     Active Substance: SPIRONOLACTONE
     Indication: Cardiac failure
     Dosage: 25 MG
     Route: 048
  6. ACETAMINOPHEN [Concomitant]
     Active Substance: ACETAMINOPHEN
     Indication: Premedication
     Dosage: UNK
     Dates: start: 20251112
  7. CETIRIZINE [Concomitant]
     Active Substance: CETIRIZINE HYDROCHLORIDE
     Indication: Premedication
     Dosage: UNK
     Dates: start: 20251112
  8. NYSTATIN [Concomitant]
     Active Substance: NYSTATIN
     Indication: Transplant
     Dosage: 1 ML
     Route: 048
  9. BACTRIM [Concomitant]
     Active Substance: SULFAMETHOXAZOLE\TRIMETHOPRIM
     Indication: Transplant
     Dosage: 1/2 TABLET
     Route: 048
  10. DAPAGLIFLOZIN [Concomitant]
     Active Substance: DAPAGLIFLOZIN
     Indication: Cardiac failure
     Dosage: 5 MG
     Route: 048

REACTIONS (10)
  - Meningitis aseptic [Recovered/Resolved]
  - Headache [Recovering/Resolving]
  - Vomiting [Unknown]
  - Photophobia [Unknown]
  - Crying [Unknown]
  - Body temperature increased [Unknown]
  - Flushing [Unknown]
  - Somnolence [Unknown]
  - Nausea [Recovering/Resolving]
  - Off label use [Unknown]

NARRATIVE: CASE EVENT DATE: 20251101
